FAERS Safety Report 7462971-9 (Version None)
Quarter: 2011Q2

REPORT INFORMATION
  Report Type: 
  Country: None (occurrence: None)
  Receive Date: 20110506
  Receipt Date: 20110427
  Transmission Date: 20111010
  Serious: Yes (Congenital Anomaly)
  Sender: FDA-Public Use
  Company Number: PHHY2011GB35247

PATIENT

DRUGS (1)
  1. LAMOTRIGINE [Suspect]
     Indication: EPILEPSY
     Dosage: 250 MG, QD
     Route: 064

REACTIONS (2)
  - EXOMPHALOS [None]
  - DRUG EXPOSURE DURING PREGNANCY [None]
